FAERS Safety Report 6468879-X (Version None)
Quarter: 2009Q4

REPORT INFORMATION
  Report Type: 
  Country: None (occurrence: None)
  Receive Date: 20091203
  Receipt Date: 20080403
  Transmission Date: 20100525
  Serious: Yes (Other)
  Sender: FDA-Public Use
  Company Number: US-ELI_LILLY_AND_COMPANY-US200604004800

PATIENT
  Age: 49 Year
  Sex: Female

DRUGS (1)
  1. FORTEO [Suspect]
     Indication: OSTEOPOROSIS
     Dates: start: 20050210, end: 20051201

REACTIONS (3)
  - BACK PAIN [None]
  - BONE SCAN ABNORMAL [None]
  - PRIMITIVE NEUROECTODERMAL TUMOUR [None]
